FAERS Safety Report 8959015 (Version 1)
Quarter: 2012Q4

REPORT INFORMATION
  Report Type: Spontaneous
  Country: HR (occurrence: None)
  Receive Date: 20121128
  Receipt Date: 20121128
  Transmission Date: 20130627
  Serious: Yes (Other)
  Sender: FDA-Public Use
  Company Number: FK201203405

PATIENT
  Age: 78 Year
  Sex: Female

DRUGS (2)
  1. ACYCLOVIR SODIUM (MANUFACTURER UNKNOWN) (ACYCLOVIR SODIUM) (ACYCLOVIR SODIUM) [Suspect]
     Indication: HERPES  ZOSTER
     Dosage: 900 mg,  times  5,  Oral
2 D
     Route: 048
  2. ACYCLOVIR SODIUM (MANUFACTURER UNKNOWN) (ACYCLOVIR SODIUM) (ACYCLOVIR SODIUM) [Suspect]
     Indication: HERPES  ZOSTER
     Dosage: Unknown,  Oral
     Route: 048

REACTIONS (3)
  - Neurotoxicity [None]
  - Confusional state [None]
  - Disorientation [None]
